FAERS Safety Report 8869231 (Version 4)
Quarter: 2013Q1

REPORT INFORMATION
  Report Type: Spontaneous
  Country: DK (occurrence: None)
  Receive Date: 20121024
  Receipt Date: 20130219
  Transmission Date: 20140127
  Serious: Yes (Other)
  Sender: FDA-Public Use
  Company Number: DSA_03734_2012

PATIENT
  Sex: Female
  Weight: 74 kg

DRUGS (9)
  1. VANIQA [Suspect]
     Indication: HIRSUTISM
     Dosage: (1DF [APPLIED TWICE DAILY ON LIPS, CHEEKS, CHIN AND NECK (ONLY ONE SIDE OF THE FACE),
     Route: 061
     Dates: start: 20120528, end: 20121003
  2. METFORMIN [Suspect]
     Indication: CONTRACEPTION
     Dates: start: 2005, end: 2012
  3. SPIRIX [Suspect]
     Route: 048
     Dates: start: 2011
  4. SIMVASTATIN (UNKNOWN) [Suspect]
     Route: 048
     Dates: start: 2006
  5. HJERTEMAGNYL/00228701/ [Concomitant]
  6. PINEX/00020001/ [Concomitant]
  7. YASMIN [Concomitant]
  8. VICTOZA [Concomitant]
  9. APROVEL [Concomitant]

REACTIONS (4)
  - Abortion spontaneous [None]
  - Maternal exposure during pregnancy [None]
  - Pregnancy on oral contraceptive [None]
  - Drug interaction [None]
